FAERS Safety Report 9871204 (Version 1)
Quarter: 2014Q1

REPORT INFORMATION
  Report Type: Spontaneous
  Country: DE (occurrence: DE)
  Receive Date: 20140205
  Receipt Date: 20140205
  Transmission Date: 20141002
  Serious: Yes (Other)
  Sender: FDA-Public Use
  Company Number: DE-BAYER-2014-015823

PATIENT
  Age: 67 Year
  Sex: Male

DRUGS (4)
  1. SORAFENIB (RAF KINASE INHIBITOR) [Suspect]
     Indication: NON-SMALL CELL LUNG CANCER METASTATIC
     Dosage: UNK
  2. PACLITAXEL [Suspect]
     Indication: NON-SMALL CELL LUNG CANCER METASTATIC
  3. CARBOPLATIN [Suspect]
     Indication: NON-SMALL CELL LUNG CANCER METASTATIC
  4. ZOLEDRONATE [Concomitant]
     Indication: METASTASES TO BONE

REACTIONS (5)
  - Off label use [None]
  - Diarrhoea [None]
  - Vomiting [None]
  - Asthenia [None]
  - Non-small cell lung cancer [Not Recovered/Not Resolved]
